FAERS Safety Report 4722304-5 (Version None)
Quarter: 2005Q3

REPORT INFORMATION
  Report Type: 
  Country: None (occurrence: None)
  Receive Date: 20050722
  Receipt Date: 20041018
  Transmission Date: 20060218
  Serious: No
  Sender: FDA-Public Use
  Company Number: US-GLAXOSMITHKLINE-A0530233A

PATIENT
  Age: 79 Year
  Sex: Female

DRUGS (7)
  1. AVANDIA [Suspect]
     Dosage: 4MG PER DAY
     Route: 048
  2. ATENOLOL [Concomitant]
  3. DIGITEK [Concomitant]
  4. FOLIC ACID [Concomitant]
  5. TRIAMTERENE [Concomitant]
  6. MULTIVITAMIN [Concomitant]
  7. VITAMIN E [Concomitant]

REACTIONS (1)
  - ALOPECIA [None]
